FAERS Safety Report 7483663-6 (Version None)
Quarter: 2011Q2

REPORT INFORMATION
  Report Type: 
  Country: None (occurrence: None)
  Receive Date: 20110517
  Receipt Date: 20110514
  Transmission Date: 20111010
  Serious: No
  Sender: FDA-Public Use
  Company Number: US-PFIZER INC-2011104078

PATIENT
  Sex: Female
  Weight: 73 kg

DRUGS (5)
  1. NEURONTIN [Suspect]
     Indication: NERVE INJURY
  2. NEURONTIN [Suspect]
     Indication: NEUROPATHY PERIPHERAL
     Dosage: 200 MG, 3X/DAY
     Route: 048
     Dates: start: 20110402
  3. CYMBALTA [Concomitant]
     Indication: DEPRESSION
  4. XANAX [Concomitant]
     Indication: ANXIETY
     Dosage: 25 MG, 2X/DAY
     Route: 048
  5. CYMBALTA [Concomitant]
     Indication: ANXIETY
     Dosage: 60 MG, 1X/DAY
     Route: 048

REACTIONS (2)
  - MUSCULOSKELETAL STIFFNESS [None]
  - MUSCLE SPASMS [None]
